FAERS Safety Report 7349745-4 (Version None)
Quarter: 2011Q1

REPORT INFORMATION
  Report Type: 
  Country: None (occurrence: None)
  Receive Date: 20110314
  Receipt Date: 20110303
  Transmission Date: 20110831
  Serious: Yes (Other)
  Sender: FDA-Public Use
  Company Number: US-GILEAD-2011-0037250

PATIENT
  Age: 39 Year
  Sex: Female

DRUGS (5)
  1. TRUVADA [Suspect]
     Indication: HIV INFECTION
     Dates: start: 20100527
  2. ATRIPLA [Suspect]
     Indication: HIV INFECTION
     Dates: start: 20100527
  3. DAPSONE [Concomitant]
     Indication: PRODUCT USED FOR UNKNOWN INDICATION
  4. ATAZANAVIR [Concomitant]
     Indication: HIV INFECTION
     Dates: start: 20100527
  5. RITONAVIR [Concomitant]
     Indication: HIV INFECTION
     Dates: start: 20100527

REACTIONS (3)
  - BLOOD BILIRUBIN UNCONJUGATED INCREASED [None]
  - HAEMOLYTIC ANAEMIA [None]
  - RASH PRURITIC [None]
